FAERS Safety Report 7243952-7 (Version None)
Quarter: 2011Q1

REPORT INFORMATION
  Report Type: 
  Country: None (occurrence: None)
  Receive Date: 20110125
  Receipt Date: 20110119
  Transmission Date: 20110831
  Serious: Yes (Life-Threatening)
  Sender: FDA-Public Use
  Company Number: PHHY2011IT05146

PATIENT
  Sex: Male

DRUGS (4)
  1. CITALOPRAM [Concomitant]
     Dosage: 20 MG, QD
     Route: 048
  2. RIVASTIGMINE TARTRATE [Suspect]
     Dosage: 2 MG, QD
     Route: 048
     Dates: start: 20101001, end: 20101219
  3. SEROQUEL [Concomitant]
     Dosage: 75 MG, QD
     Route: 048
  4. RIVASTIGMINE TARTRATE [Suspect]
     Indication: SENILE DEMENTIA
     Dosage: 2 MG, QD
     Route: 048

REACTIONS (3)
  - HYPOKALAEMIA [None]
  - DIARRHOEA [None]
  - RHABDOMYOLYSIS [None]
